FAERS Safety Report 6541840-2 (Version None)
Quarter: 2010Q1

REPORT INFORMATION
  Report Type: 
  Country: None (occurrence: None)
  Receive Date: 20100119
  Receipt Date: 20100115
  Transmission Date: 20100710
  Serious: Yes (Death, Hospitalization)
  Sender: FDA-Public Use
  Company Number: PHEH2010US00442

PATIENT
  Sex: Female

DRUGS (27)
  1. EXJADE [Suspect]
     Indication: LYMPHOCYTIC LEUKAEMIA
     Dosage: 1000 MG, QD
     Route: 048
     Dates: start: 20080806, end: 20091027
  2. EXJADE [Suspect]
     Indication: HAEMOSIDEROSIS
  3. PHENERGAN HCL [Concomitant]
  4. NASONEX [Concomitant]
     Dosage: 50 MCG 2 SPRAYS DAILY
     Route: 045
  5. TRICOR [Concomitant]
     Dosage: 48 MG, QD
     Route: 048
  6. BACTRIM DS [Concomitant]
     Dosage: 800MG/160MG ONE TAB BID
     Route: 048
  7. COZAAR [Concomitant]
     Dosage: 25 MG, QD
     Route: 048
  8. METFORMIN HYDROCHLORIDE [Concomitant]
     Dosage: 1000 MG, BID
     Route: 048
  9. VICODIN [Concomitant]
     Dosage: 500MG/5MG Q6HOURS PRN
     Route: 048
  10. FOLIC ACID [Concomitant]
     Dosage: 1 MG, QD
     Route: 048
  11. MECLIZINE [Concomitant]
     Indication: DIZZINESS
     Dosage: 25 MG PO TID PRN
     Route: 048
  12. NORVASK [Concomitant]
     Dosage: 10 MG, QD
     Route: 048
  13. ACTOS [Concomitant]
     Dosage: 30 MG, QD
     Route: 048
  14. PLAVIX [Concomitant]
     Dosage: 75 MG, QD
     Route: 048
  15. SYNTHROID [Concomitant]
     Dosage: 75 MCG DAILY
     Route: 048
  16. ATENOLOL [Concomitant]
     Dosage: 100 MG, QD
     Route: 048
  17. PROVENTIL [Concomitant]
     Dosage: 2 PUFF Q4HOURS PRN
  18. MIRALAX [Concomitant]
     Dosage: 17 G, QD
     Route: 048
  19. BUPROPION [Concomitant]
     Dosage: 150 MG, QD
     Route: 048
  20. ECOTRIN [Concomitant]
     Dosage: 81 MG, QD
     Route: 048
  21. PIOGLITAZONE [Concomitant]
  22. LEVOTHYROXINE SODIUM [Concomitant]
  23. AMLODIPINE [Concomitant]
  24. LOSARTAN [Concomitant]
  25. FENOFIBRATE [Concomitant]
  26. MOMETASONE FUROATE [Concomitant]
  27. PROMETHAZINE [Concomitant]

REACTIONS (54)
  - ABDOMINAL DISTENSION [None]
  - ABDOMINAL PAIN [None]
  - ABDOMINAL PAIN UPPER [None]
  - ABDOMINAL TENDERNESS [None]
  - AGONAL RHYTHM [None]
  - ANAEMIA [None]
  - ARTERIOSCLEROSIS [None]
  - ASTHENIA [None]
  - BODY TEMPERATURE DECREASED [None]
  - CARDIAC ARREST [None]
  - CARDIAC MURMUR [None]
  - CHILLS [None]
  - COAGULOPATHY [None]
  - DEHYDRATION [None]
  - DEPRESSED LEVEL OF CONSCIOUSNESS [None]
  - DIABETES MELLITUS [None]
  - DIARRHOEA [None]
  - DISSEMINATED INTRAVASCULAR COAGULATION [None]
  - DIZZINESS [None]
  - DYSPNOEA [None]
  - DYSURIA [None]
  - ELECTROMECHANICAL DISSOCIATION [None]
  - ENTEROCOLITIS INFECTIOUS [None]
  - FATIGUE [None]
  - HEADACHE [None]
  - HYPOACUSIS [None]
  - HYPOPHAGIA [None]
  - HYPOTENSION [None]
  - HYPOTHYROIDISM [None]
  - INTESTINAL DILATATION [None]
  - JAUNDICE [None]
  - MENTAL STATUS CHANGES [None]
  - METABOLIC ACIDOSIS [None]
  - NAUSEA [None]
  - OXYGEN SATURATION DECREASED [None]
  - PALLOR [None]
  - PANCYTOPENIA [None]
  - POLYURIA [None]
  - RALES [None]
  - RECTAL HAEMORRHAGE [None]
  - RENAL FAILURE ACUTE [None]
  - RESPIRATORY RATE INCREASED [None]
  - RHINORRHOEA [None]
  - SEPSIS [None]
  - SEPTIC SHOCK [None]
  - SINUS CONGESTION [None]
  - SINUS TACHYCARDIA [None]
  - SKIN DISORDER [None]
  - UNRESPONSIVE TO STIMULI [None]
  - UPPER GASTROINTESTINAL HAEMORRHAGE [None]
  - UPPER RESPIRATORY TRACT INFECTION [None]
  - URINARY TRACT INFECTION [None]
  - VOMITING [None]
  - WHEEZING [None]
